FAERS Safety Report 4946393-8 (Version None)
Quarter: 2006Q1

REPORT INFORMATION
  Report Type: 
  Country: None (occurrence: None)
  Receive Date: 20060316
  Receipt Date: 20060316
  Transmission Date: 20060701
  Serious: No
  Sender: FDA-Public Use
  Company Number: None

PATIENT
  Age: 9 Year
  Sex: Male
  Weight: 27.2158 kg

DRUGS (5)
  1. CHILDREN'S CLARITIN    5MG/5ML     SCHERING/PLOUGH [Suspect]
     Indication: LACRIMATION INCREASED
     Dosage: 2 TEASPOONS  DAILY  PO
     Route: 048
  2. CHILDREN'S CLARITIN    5MG/5ML     SCHERING/PLOUGH [Suspect]
     Indication: NASAL DISCOMFORT
     Dosage: 2 TEASPOONS  DAILY  PO
     Route: 048
  3. CHILDREN'S CLARITIN    5MG/5ML     SCHERING/PLOUGH [Suspect]
     Indication: PRURITUS
     Dosage: 2 TEASPOONS  DAILY  PO
     Route: 048
  4. CHILDREN'S CLARITIN    5MG/5ML     SCHERING/PLOUGH [Suspect]
     Indication: RHINORRHOEA
     Dosage: 2 TEASPOONS  DAILY  PO
     Route: 048
  5. CHILDREN'S CLARITIN    5MG/5ML     SCHERING/PLOUGH [Suspect]
     Indication: SNEEZING
     Dosage: 2 TEASPOONS  DAILY  PO
     Route: 048

REACTIONS (1)
  - MEDICATION ERROR [None]
